FAERS Safety Report 8882732 (Version 1)
Quarter: 2012Q4

REPORT INFORMATION
  Report Type: 
  Country: NO (occurrence: NO)
  Receive Date: 20121105
  Receipt Date: 20121105
  Transmission Date: 20130627
  Serious: Yes (Other)
  Sender: FDA-Public Use
  Company Number: NO-ELI_LILLY_AND_COMPANY-NO201210007505

PATIENT
  Age: 29 Year
  Sex: Female

DRUGS (3)
  1. ZYPADHERA [Suspect]
     Indication: SCHIZOPHRENIA, PARANOID TYPE
     Dosage: 300 mg, 2/M
     Route: 030
  2. ZOLOFT [Concomitant]
     Indication: DEPRESSION
     Dosage: 50 mg, UNK
  3. STESOLID [Concomitant]
     Indication: ANXIETY
     Dosage: 7.5 mg, qd

REACTIONS (7)
  - Sedation [Recovered/Resolved]
  - Dizziness [Recovered/Resolved]
  - Confusional state [Recovered/Resolved]
  - Chest pain [Recovered/Resolved]
  - Pain in extremity [Recovered/Resolved]
  - Paraesthesia [Recovered/Resolved]
  - Exposure during pregnancy [Recovered/Resolved]
